FAERS Safety Report 9207858 (Version 3)
Quarter: 2013Q2

REPORT INFORMATION
  Report Type: Spontaneous
  Country: US (occurrence: US)
  Receive Date: 20130403
  Receipt Date: 20130507
  Transmission Date: 20140414
  Serious: Yes (Hospitalization)
  Sender: FDA-Public Use
  Company Number: US-ABBOTT-13P-163-1069117-00

PATIENT
  Sex: Male
  Weight: 97.16 kg

DRUGS (28)
  1. ANDROGEL [Suspect]
     Indication: BLOOD TESTOSTERONE DECREASED
     Route: 061
     Dates: start: 2003, end: 2009
  2. ANDROGEL [Suspect]
     Route: 061
  3. ANDROGEL [Suspect]
     Route: 061
     Dates: start: 2011
  4. LOSARTAN [Concomitant]
     Indication: CARDIAC DISORDER
  5. ZOCOR [Concomitant]
     Indication: BLOOD CHOLESTEROL INCREASED
  6. ZANTAC [Concomitant]
     Indication: GASTRIC DISORDER
  7. LASIX [Concomitant]
     Indication: FLUID RETENTION
  8. POTASSIUM [Concomitant]
     Indication: ELECTROLYTE SUBSTITUTION THERAPY
  9. PROTONIX [Concomitant]
     Indication: GASTRIC DISORDER
  10. LYRICA [Concomitant]
     Indication: BURNING SENSATION
  11. INDOMETHACIN [Concomitant]
     Indication: BACK PAIN
  12. NAPROXEN [Concomitant]
     Indication: BACK PAIN
  13. POTASSIUM CHLORIDE [Concomitant]
     Indication: PRODUCT USED FOR UNKNOWN INDICATION
  14. COZAAR [Concomitant]
     Indication: PRODUCT USED FOR UNKNOWN INDICATION
  15. ASPIRIN [Concomitant]
     Indication: PRODUCT USED FOR UNKNOWN INDICATION
  16. PROTONIX [Concomitant]
     Indication: PRODUCT USED FOR UNKNOWN INDICATION
  17. FLOMAX [Concomitant]
     Indication: PRODUCT USED FOR UNKNOWN INDICATION
  18. ATROVENT [Concomitant]
     Indication: PRODUCT USED FOR UNKNOWN INDICATION
  19. ASTEPRO [Concomitant]
     Indication: PRODUCT USED FOR UNKNOWN INDICATION
  20. XOPENEX [Concomitant]
     Indication: PRODUCT USED FOR UNKNOWN INDICATION
  21. PATANASE [Concomitant]
     Indication: PRODUCT USED FOR UNKNOWN INDICATION
  22. CLARITIN [Concomitant]
     Indication: PRODUCT USED FOR UNKNOWN INDICATION
  23. MIRALAX [Concomitant]
     Indication: PRODUCT USED FOR UNKNOWN INDICATION
  24. ASTEPRO [Concomitant]
     Indication: PRODUCT USED FOR UNKNOWN INDICATION
     Dosage: 2 SPRAY TO BOTH NOSTRILS DAILY
  25. BENZONATATE [Concomitant]
     Indication: PRODUCT USED FOR UNKNOWN INDICATION
     Dosage: AS REQUIRED- COUGH
     Route: 048
  26. COLACE [Concomitant]
     Indication: PRODUCT USED FOR UNKNOWN INDICATION
     Route: 048
  27. COLACE [Concomitant]
  28. MOTRIN [Concomitant]
     Indication: PRODUCT USED FOR UNKNOWN INDICATION
     Dosage: 1 TABLET EVERY 6-8 HOURS AS NEEDED
     Route: 048

REACTIONS (20)
  - Myocardial infarction [Recovered/Resolved]
  - Cardiac failure [Not Recovered/Not Resolved]
  - Gastric disorder [Not Recovered/Not Resolved]
  - Weight increased [Not Recovered/Not Resolved]
  - Weight increased [Not Recovered/Not Resolved]
  - Blood glucose increased [Not Recovered/Not Resolved]
  - Ejaculation failure [Not Recovered/Not Resolved]
  - Hair growth abnormal [Not Recovered/Not Resolved]
  - Aggression [Recovering/Resolving]
  - Hallucination, auditory [Recovering/Resolving]
  - Violence-related symptom [Recovering/Resolving]
  - Type 2 diabetes mellitus [Not Recovered/Not Resolved]
  - Blood testosterone increased [Recovered/Resolved]
  - Constipation [Recovered/Resolved]
  - Aggression [Unknown]
  - Erectile dysfunction [Recovering/Resolving]
  - Erectile dysfunction [Unknown]
  - Anorgasmia [Unknown]
  - Neuropathy peripheral [Unknown]
  - Hyperlipidaemia [Unknown]
